FAERS Safety Report 18283375 (Version 1)
Quarter: 2020Q3

REPORT INFORMATION
  Report Type: Spontaneous
  Country: US (occurrence: US)
  Receive Date: 20200918
  Receipt Date: 20200918
  Transmission Date: 20201103
  Serious: No
  Sender: FDA-Public Use
  Company Number: US-KVK-TECH, INC-2090911

PATIENT

DRUGS (1)
  1. PHENTERMINE HYDROCHLORIDE. [Suspect]
     Active Substance: PHENTERMINE HYDROCHLORIDE
     Indication: DECREASED APPETITE
     Route: 065

REACTIONS (3)
  - Intentional product use issue [Recovered/Resolved]
  - Fatigue [Unknown]
  - Drug ineffective [Unknown]
